FAERS Safety Report 4886078-X (Version None)
Quarter: 2006Q1

REPORT INFORMATION
  Report Type: 
  Country: None (occurrence: None)
  Receive Date: 20060120
  Receipt Date: 20060111
  Transmission Date: 20060701
  Serious: Yes (Other)
  Sender: FDA-Public Use
  Company Number: JP-AVENTIS-200610114JP

PATIENT
  Age: 86 Year
  Sex: Male

DRUGS (8)
  1. FUROSEMIDE [Suspect]
     Route: 048
  2. CARBAMAZEPINE [Suspect]
     Indication: ABNORMAL BEHAVIOUR
     Route: 048
  3. CARBAMAZEPINE [Suspect]
     Indication: IRRITABILITY
     Route: 048
  4. ENALAPRIL [Concomitant]
     Route: 048
  5. WARFARIN POTASSIUM [Concomitant]
     Route: 048
  6. FAMOTIDINE [Concomitant]
  7. TOCOPHEROL CONCENTRATE CAP [Concomitant]
  8. REBAMIPIDE [Concomitant]

REACTIONS (10)
  - ATRIAL FIBRILLATION [None]
  - BRADYCARDIA [None]
  - CHOLESTASIS [None]
  - CONVULSION [None]
  - DEPRESSED LEVEL OF CONSCIOUSNESS [None]
  - DRUG INTERACTION [None]
  - DRUG LEVEL INCREASED [None]
  - DRUG TOXICITY [None]
  - HYPERKALAEMIA [None]
  - PYREXIA [None]
